FAERS Safety Report 4534210-X (Version None)
Quarter: 2004Q4

REPORT INFORMATION
  Report Type: 
  Country: None (occurrence: None)
  Receive Date: 20041221
  Receipt Date: 20041221
  Transmission Date: 20050328
  Serious: No
  Sender: FDA-Public Use
  Company Number: None

PATIENT
  Age: 47 Year
  Sex: Male
  Weight: 83.4619 kg

DRUGS (21)
  1. TERAZOSIN   5MG [Suspect]
     Indication: BENIGN PROSTATIC HYPERPLASIA
     Dosage: 5MG   QHS   ORAL
     Route: 048
     Dates: start: 20041110, end: 20041208
  2. ASPIRIN [Concomitant]
  3. INSULIN LISPRO [Concomitant]
  4. TRAMADOL HCL [Concomitant]
  5. OMEPRAZOLE [Concomitant]
  6. METOPROLOL [Concomitant]
  7. LEVOTHYROXINE SODIUM [Concomitant]
  8. TERAZOSIN HCL [Concomitant]
  9. BUPROPION HCL [Concomitant]
  10. NEPHRO-VITE RX TAB [Concomitant]
  11. WARFARIN SODIUM [Concomitant]
  12. FLUTICASONE PROPIONATE [Concomitant]
  13. SEVELAMER [Concomitant]
  14. CETIRIZINE [Concomitant]
  15. METAPROTERENOL [Concomitant]
  16. FELODIPINE [Concomitant]
  17. SIMVASTATIN [Concomitant]
  18. NIACIN [Concomitant]
  19. LEVOTHYROXINE SODIUM [Concomitant]
  20. ALPROSTADIL [Concomitant]
  21. HCTZ 12.5/IRBESARTAN [Concomitant]

REACTIONS (2)
  - COUGH [None]
  - DYSPNOEA [None]
